FAERS Safety Report 6994250-8 (Version None)
Quarter: 2010Q3

REPORT INFORMATION
  Report Type: 
  Country: None (occurrence: None)
  Receive Date: 20100917
  Receipt Date: 20070521
  Transmission Date: 20110219
  Serious: Yes (Other)
  Sender: FDA-Public Use
  Company Number: US-ASTRAZENECA-2006UW22946

PATIENT
  Age: 14379 Day
  Sex: Female
  Weight: 134.3 kg

DRUGS (14)
  1. SEROQUEL [Suspect]
     Indication: DEPRESSION
     Route: 048
     Dates: start: 20051001
  2. SEROQUEL [Suspect]
     Dosage: 200-400 MG
     Route: 048
     Dates: start: 20051107, end: 20070510
  3. ABILIFY [Suspect]
     Dates: start: 20061101
  4. ABILIFY [Suspect]
     Dates: start: 20070510
  5. RISPERDAL [Concomitant]
  6. EFFEXOR XR [Concomitant]
     Dosage: 150-300 MG
     Dates: start: 20050517
  7. TRANXENE [Concomitant]
     Dates: start: 20051107
  8. LIPITOR [Concomitant]
     Dates: start: 20050217
  9. AMARYL [Concomitant]
     Dates: start: 20060222
  10. PROZAC [Concomitant]
     Dates: start: 20070128
  11. SYNTHROID [Concomitant]
     Dates: start: 20070128
  12. GLUCOPHAGE [Concomitant]
     Dates: start: 20070128
  13. ACTOS [Concomitant]
     Dates: start: 20070128
  14. PRAVACHOL [Concomitant]
     Dates: start: 20070128

REACTIONS (4)
  - BLOOD CHOLESTEROL INCREASED [None]
  - DIABETES MELLITUS [None]
  - DIABETES MELLITUS INADEQUATE CONTROL [None]
  - TYPE 2 DIABETES MELLITUS [None]
